FAERS Safety Report 7473810-4 (Version None)
Quarter: 2011Q2

REPORT INFORMATION
  Report Type: 
  Country: None (occurrence: None)
  Receive Date: 20110511
  Receipt Date: 20110324
  Transmission Date: 20111010
  Serious: Yes (Other)
  Sender: FDA-Public Use
  Company Number: US-BAYER-201038144NA

PATIENT
  Age: 25 Year
  Sex: Female
  Weight: 86.168 kg

DRUGS (6)
  1. FISH OIL [Concomitant]
  2. YAZ [Suspect]
     Dosage: UNK
     Dates: start: 20080301, end: 20081201
  3. PRILOSEC [Concomitant]
     Indication: GASTROOESOPHAGEAL REFLUX DISEASE
  4. YAZ [Suspect]
     Indication: PREMENSTRUAL SYNDROME
     Dosage: UNK
     Dates: start: 20080313, end: 20081022
  5. YAZ [Suspect]
     Indication: CONTRACEPTION
     Route: 048
     Dates: start: 20080313, end: 20081115
  6. VITAMINS [Concomitant]

REACTIONS (4)
  - CHOLESTEROSIS [None]
  - GALLBLADDER DISORDER [None]
  - CHOLELITHIASIS [None]
  - CHOLECYSTITIS CHRONIC [None]
